FAERS Safety Report 4879840-0 (Version None)
Quarter: 2006Q1

REPORT INFORMATION
  Report Type: 
  Country: None (occurrence: None)
  Receive Date: 20060113
  Receipt Date: 20060103
  Transmission Date: 20060701
  Serious: Yes (Death)
  Sender: FDA-Public Use
  Company Number: US-JNJFOC-20060100726

PATIENT
  Sex: Female
  Weight: 58.97 kg

DRUGS (4)
  1. TOPAMAX [Suspect]
     Indication: BIPOLAR DISORDER
     Route: 048
     Dates: start: 20051129, end: 20051208
  2. TOPAMAX [Suspect]
     Indication: DEPRESSION
     Route: 048
     Dates: start: 20051129, end: 20051208
  3. TOPAMAX [Suspect]
     Route: 048
     Dates: start: 20051129, end: 20051208
  4. PROZAC [Concomitant]

REACTIONS (1)
  - DEATH [None]
